FAERS Safety Report 15500605 (Version 1)
Quarter: 2018Q4

REPORT INFORMATION
  Report Type: Spontaneous
  Country: US (occurrence: US)
  Receive Date: 20181015
  Receipt Date: 20181015
  Transmission Date: 20190205
  Serious: No
  Sender: FDA-Public Use
  Company Number: None

PATIENT
  Age: 50 Year
  Sex: Male

DRUGS (3)
  1. KETOROLAC 10MG [Concomitant]
     Dates: start: 20181013
  2. GUAIFENESIN AND CODEINE PHOSPHATE ORAL SOLUTION USP [Suspect]
     Active Substance: CODEINE PHOSPHATE\GUAIFENESIN
     Indication: COUGH
     Route: 048
     Dates: start: 20181013, end: 20181014
  3. PREDNISONE 10MG [Concomitant]
     Active Substance: PREDNISONE
     Dates: start: 20181013

REACTIONS (2)
  - Manufacturing materials issue [None]
  - Drug ineffective [None]

NARRATIVE: CASE EVENT DATE: 20181013
